FAERS Safety Report 5866064-3 (Version None)
Quarter: 2008Q3

REPORT INFORMATION
  Report Type: 
  Country: None (occurrence: None)
  Receive Date: 20080829
  Receipt Date: 20080828
  Transmission Date: 20090109
  Serious: Yes (Other)
  Sender: FDA-Public Use
  Company Number: JP-BOEHRINGER INGELHEIM GMBH, GERMANY-2008-BP-11747NB

PATIENT
  Sex: Male
  Weight: 97.5 kg

DRUGS (7)
  1. MICARDIS [Suspect]
     Indication: HYPERTENSION
     Route: 048
     Dates: start: 20080701, end: 20080711
  2. ZYLORIC [Concomitant]
     Indication: HYPERURICAEMIA
     Route: 048
  3. RABEPRAZOLE SODIUM [Concomitant]
     Indication: REFLUX OESOPHAGITIS
     Route: 048
  4. NORVASC [Concomitant]
     Indication: HYPERTENSION
     Route: 048
     Dates: start: 20080101
  5. HYPOCA [Concomitant]
     Indication: HYPERTENSION
     Route: 048
     Dates: start: 20080624
  6. PRECIPITATED CALCIUM CABONATE [Concomitant]
     Indication: HYPERPHOSPHATAEMIA
     Route: 048
  7. RENAGEL [Concomitant]
     Indication: HYPERPHOSPHATAEMIA
     Route: 048

REACTIONS (1)
  - DERMATITIS EXFOLIATIVE [None]
